FAERS Safety Report 8432002-2 (Version None)
Quarter: 2012Q2

REPORT INFORMATION
  Report Type: 
  Country: None (occurrence: None)
  Receive Date: 20120613
  Receipt Date: 20110831
  Transmission Date: 20120825
  Serious: No
  Sender: FDA-Public Use
  Company Number: US-ASTRAZENECA-2011SE52766

PATIENT
  Sex: Female

DRUGS (2)
  1. NEXIUM [Suspect]
     Route: 048
  2. RHINOCORT [Suspect]
     Dosage: 0.5 MG/2ML INHALE EVERY 12 HOURS
     Route: 045

REACTIONS (4)
  - PAIN [None]
  - RHINITIS ALLERGIC [None]
  - BACK PAIN [None]
  - SINUSITIS [None]
